FAERS Safety Report 5817309-7 (Version None)
Quarter: 2008Q3

REPORT INFORMATION
  Report Type: 
  Country: None (occurrence: None)
  Receive Date: 20080722
  Receipt Date: 20080715
  Transmission Date: 20090109
  Serious: Yes (Other)
  Sender: FDA-Public Use
  Company Number: B0529947A

PATIENT
  Age: 38 Year
  Sex: Male
  Weight: 93 kg

DRUGS (3)
  1. FLIXOTIDE [Suspect]
     Indication: ASTHMA
     Dosage: 500MCG TWICE PER DAY
     Route: 055
     Dates: start: 20070713
  2. BERODUAL [Concomitant]
     Indication: DRUG USE FOR UNKNOWN INDICATION
     Dosage: 200MCG TWICE PER DAY
     Route: 055
     Dates: start: 20060813
  3. DESLORATADINE [Concomitant]
     Indication: DRUG USE FOR UNKNOWN INDICATION
     Dosage: 5MG PER DAY
     Route: 048
     Dates: start: 20060813

REACTIONS (3)
  - DERMATITIS BULLOUS [None]
  - SKIN EXFOLIATION [None]
  - SKIN REACTION [None]
